FAERS Safety Report 4518589-0 (Version None)
Quarter: 2004Q4

REPORT INFORMATION
  Report Type: 
  Country: None (occurrence: None)
  Receive Date: 20041203
  Receipt Date: 20041123
  Transmission Date: 20050328
  Serious: Yes (Death, Hospitalization)
  Sender: FDA-Public Use
  Company Number: DE-MERCK-0411DEU00534

PATIENT
  Age: 37 Year
  Sex: Male

DRUGS (4)
  1. CRIXIVAN [Suspect]
     Indication: HIV INFECTION
     Route: 065
  2. LOPINAVIR AND RITONAVIR [Concomitant]
     Route: 065
  3. LAMIVUDINE [Concomitant]
     Route: 065
  4. TENOFOVIR DISOPROXIL FUMARATE [Concomitant]
     Route: 065

REACTIONS (6)
  - ANGIOCENTRIC LYMPHOMA [None]
  - ASTHENIA [None]
  - CONVULSION [None]
  - CSF LACTATE INCREASED [None]
  - CSF PROTEIN INCREASED [None]
  - HEADACHE [None]
